FAERS Safety Report 7394053-9 (Version None)
Quarter: 2011Q2

REPORT INFORMATION
  Report Type: 
  Country: None (occurrence: None)
  Receive Date: 20110405
  Receipt Date: 20110329
  Transmission Date: 20111010
  Serious: Yes (Death, Hospitalization, Other)
  Sender: FDA-Public Use
  Company Number: US-AMGEN-USASP2011016942

PATIENT
  Age: 63 Year
  Sex: Male

DRUGS (1)
  1. XGEVA [Suspect]
     Indication: METASTASES TO BONE
     Dosage: 120 MG, Q4WK
     Dates: start: 20110203, end: 20110203

REACTIONS (3)
  - DEATH [None]
  - HOSPITALISATION [None]
  - GENERAL PHYSICAL HEALTH DETERIORATION [None]
